FAERS Safety Report 14750144 (Version 2)
Quarter: 2018Q2

REPORT INFORMATION
  Report Type: Spontaneous
  Country: US (occurrence: US)
  Receive Date: 20180412
  Receipt Date: 20180614
  Transmission Date: 20180711
  Serious: No
  Sender: FDA-Public Use
  Company Number: US-ASTRAZENECA-2012BM09126

PATIENT
  Age: 827 Month
  Sex: Female

DRUGS (2)
  1. BYDUREON [Suspect]
     Active Substance: EXENATIDE
     Indication: TYPE 2 DIABETES MELLITUS
     Route: 058
     Dates: start: 201204, end: 20180312
  2. BYDUREON BCISE [Suspect]
     Active Substance: EXENATIDE
     Indication: TYPE 2 DIABETES MELLITUS
     Route: 058
     Dates: start: 20180319

REACTIONS (6)
  - Needle issue [Unknown]
  - Device malfunction [Unknown]
  - Injection site pain [Recovered/Resolved]
  - Injection site bruising [Unknown]
  - Injection site haemorrhage [Unknown]
  - Device leakage [Unknown]

NARRATIVE: CASE EVENT DATE: 201204
